FAERS Safety Report 5822382-6 (Version None)
Quarter: 2008Q3

REPORT INFORMATION
  Report Type: 
  Country: None (occurrence: None)
  Receive Date: 20080722
  Receipt Date: 20080711
  Transmission Date: 20090109
  Serious: Yes (Life-Threatening, Hospitalization)
  Sender: FDA-Public Use
  Company Number: GXKR2008FR05865

PATIENT
  Age: 55 Year
  Sex: Female

DRUGS (4)
  1. PROPRANOLOL [Suspect]
     Indication: VARICES OESOPHAGEAL
     Dosage: 160 MG/DAY
  2. VENLAFAXINE HCL [Suspect]
     Dosage: 75 MG/DAY
  3. PANTOPRAZOLE SODIUM [Concomitant]
  4. ALENDRONATE SODIUM [Concomitant]

REACTIONS (8)
  - ACUTE RESPIRATORY FAILURE [None]
  - CREPITATIONS [None]
  - DRUG INTERACTION [None]
  - MYCOPLASMA INFECTION [None]
  - OEDEMA PERIPHERAL [None]
  - ORTHOPNOEA [None]
  - PNEUMONITIS [None]
  - RALES [None]
